FAERS Safety Report 8826836 (Version 2)
Quarter: 2013Q1

REPORT INFORMATION
  Report Type: Report from Study
  Country: GB (occurrence: GB)
  Receive Date: 20121005
  Receipt Date: 20130226
  Transmission Date: 20140127
  Serious: Yes (Life-Threatening, Hospitalization)
  Sender: FDA-Public Use
  Company Number: GB-PFIZER INC-2012241038

PATIENT
  Age: 71 Year
  Sex: Male
  Weight: 91 kg

DRUGS (26)
  1. DOXORUBICIN [Suspect]
     Indication: B-CELL LYMPHOMA
     Dosage: 100 MG, CYCLIC, EVERY 3 WEEKS
     Route: 042
     Dates: start: 20111209
  2. CYCLOPHOSPHAMIDE [Suspect]
     Indication: B-CELL LYMPHOMA
     Dosage: 1500 MG, CYCLIC, EVERY 3 WEEKS
     Route: 042
     Dates: start: 20111209
  3. VINCRISTINE SULFATE [Suspect]
     Indication: B-CELL LYMPHOMA
     Dosage: 2 MG, CYCLIC, EVERY 3 WEEKS
     Route: 042
     Dates: start: 20111209
  4. PREDNISONE [Suspect]
     Indication: B-CELL LYMPHOMA
     Dosage: 100 MG, CYCLIC, EVERY 3 WEEKS
     Route: 048
     Dates: start: 20111209
  5. OBINUTUZUMAB [Suspect]
     Indication: B-CELL LYMPHOMA
     Dosage: 250 MG, CYCLIC, EVERY 3 WEEKS
     Route: 042
     Dates: start: 20111208
  6. OBINUTUZUMAB [Suspect]
  7. BENDROFLUAZIDE [Concomitant]
     Indication: HYPERTENSION
     Dosage: UNK
     Dates: start: 201202
  8. SOTALOL [Concomitant]
     Indication: ATRIAL FIBRILLATION
     Dosage: UNK
     Dates: start: 20040804, end: 201202
  9. SERTRALINE [Concomitant]
     Indication: DEPRESSION
  10. SIMVASTATIN [Concomitant]
     Indication: HYPERTENSION
  11. OMEPRAZOLE [Concomitant]
     Indication: DYSPEPSIA
  12. ACETYLSALICYLIC ACID [Concomitant]
     Indication: HYPERTENSION
  13. SENNA [Concomitant]
     Indication: CONSTIPATION
     Dosage: UNK
     Dates: start: 20111211, end: 20111213
  14. ALLOPURINOL [Concomitant]
     Indication: PROPHYLAXIS
     Dosage: UNK
     Dates: start: 20111208
  15. FLUCONAZOLE [Concomitant]
     Indication: MUCOSAL INFLAMMATION
     Dosage: UNK
     Dates: start: 20111222, end: 20111229
  16. DOMPERIDONE [Concomitant]
     Indication: NAUSEA
     Dosage: UNK
     Dates: start: 20111212, end: 20111217
  17. MILPAR [Concomitant]
     Indication: CONSTIPATION
     Dosage: UNK
     Dates: start: 20111229
  18. CHLORPHENAMINE [Concomitant]
     Indication: PROPHYLAXIS
     Dosage: UNK
     Dates: start: 20111208
  19. PARACETAMOL [Concomitant]
     Indication: PROPHYLAXIS
     Dosage: UNK
     Dates: start: 20111208
  20. MEROPENEM [Concomitant]
     Indication: PYREXIA
     Dosage: UNK
     Dates: start: 20111211, end: 20111213
  21. TRIMETHOPRIM [Concomitant]
     Indication: URINARY TRACT INFECTION
     Dosage: UNK
     Dates: start: 20111220, end: 20111223
  22. SOLIFENACIN [Concomitant]
     Indication: HYPERTONIC BLADDER
     Dosage: UNK
     Dates: start: 20120107
  23. MOVICOL [Concomitant]
     Indication: CONSTIPATION
     Dosage: UNK
     Dates: start: 20120107, end: 20120110
  24. ONDANSETRON [Concomitant]
     Indication: NAUSEA
     Dosage: UNK
     Dates: start: 20111208
  25. POLYETHYLENE GLYCOL [Concomitant]
  26. ELECTROLYTES NOS [Concomitant]

REACTIONS (2)
  - Neutropenic sepsis [Recovered/Resolved]
  - Neutropenia [Recovered/Resolved]
